FAERS Safety Report 9524227 (Version 1)
Quarter: 2013Q1

REPORT INFORMATION
  Report Type: Spontaneous
  Country: US (occurrence: None)
  Receive Date: 20130305
  Receipt Date: 20130305
  Transmission Date: 20140127
  Serious: Yes (Hospitalization)
  Sender: FDA-Public Use
  Company Number: 163-21880-12020877

PATIENT
  Age: 41 Year
  Sex: Female

DRUGS (11)
  1. REVLIMID [Suspect]
     Dosage: 10 MG, DAILY FOR 28 DAYS, PO
     Route: 048
     Dates: start: 201008
  2. CALCIUM +D(OS-CAL)  (UNKNOWN) [Concomitant]
  3. COZAAR (LOSARTAN POTASSIUM) (UNKNOWN) [Concomitant]
  4. KLOR-CON (POTASSIUM CHLORIDE) (UNKNOWN) [Concomitant]
  5. PRILOSEC (OMEPRAZOLE ) (UNKNOWN) [Concomitant]
  6. TOPROL XL (METOPROLOL SUCCINATE) (UNKNOWN) [Concomitant]
  7. MULTIVITAMINS (MULTIVITAMINS) (UNKNOWN) [Concomitant]
  8. ZOCOR (SIMVASTATIN) (UNKNOWN) [Concomitant]
  9. ZOLOFT (SERTRALINE HYDROCHLORIDE) (UNKNOWN) [Concomitant]
  10. WARFARIN (WARFARIN) (UNKNOWN) [Concomitant]
  11. ZANTAC (RANITIDINE HYDROCHLORIDE) (UNKNOWN) [Concomitant]

REACTIONS (1)
  - Pneumonia [None]
